FAERS Safety Report 4773085-0 (Version None)
Quarter: 2005Q3

REPORT INFORMATION
  Report Type: 
  Country: None (occurrence: None)
  Receive Date: 20050916
  Receipt Date: 20050909
  Transmission Date: 20060218
  Serious: Yes (Hospitalization, Other)
  Sender: FDA-Public Use
  Company Number: KII-2005-0018535

PATIENT
  Age: 37 Year
  Sex: Female

DRUGS (6)
  1. OXYCONTIN [Suspect]
     Indication: PAIN
     Dosage: ORAL
     Route: 048
  2. FLUOXETINE [Suspect]
     Dosage: ORAL
     Route: 048
  3. TRAZODONE HCL [Suspect]
     Dosage: ORAL
     Route: 048
  4. COCAINE (COCAINE) [Suspect]
     Dosage: ORAL
     Route: 048
  5. DIPHENHYDRAMINE HCL [Suspect]
  6. LAMOTRIGINE [Suspect]
     Dosage: ORAL
     Route: 048

REACTIONS (7)
  - COMA [None]
  - CONFUSIONAL STATE [None]
  - DELIRIUM [None]
  - DRUG ABUSER [None]
  - DRUG SCREEN POSITIVE [None]
  - ELECTROCARDIOGRAM QT CORRECTED INTERVAL PROLONGED [None]
  - OVERDOSE [None]
